FAERS Safety Report 19449134 (Version 2)
Quarter: 2021Q3

REPORT INFORMATION
  Report Type: Spontaneous
  Country: US (occurrence: US)
  Receive Date: 20210622
  Receipt Date: 20210709
  Transmission Date: 20211014
  Serious: No
  Sender: FDA-Public Use
  Company Number: US-PFIZER INC-2021606235

PATIENT
  Age: 15 Year
  Sex: Female

DRUGS (1)
  1. GENOTROPIN [Suspect]
     Active Substance: SOMATROPIN
     Dosage: 2.0 MG ALTERNATING 2.2 MG 7 DAYS A WEEK
     Dates: start: 20171010

REACTIONS (2)
  - Device failure [Unknown]
  - Drug dose omission by device [Unknown]
